FAERS Safety Report 5492046-X (Version None)
Quarter: 2007Q4

REPORT INFORMATION
  Report Type: 
  Country: None (occurrence: None)
  Receive Date: 20071018
  Receipt Date: 20071018
  Transmission Date: 20080405
  Serious: No
  Sender: FDA-Public Use
  Company Number: None

PATIENT
  Age: 28 Year
  Sex: Female

DRUGS (1)
  1. AVONEX [Suspect]
     Indication: MULTIPLE SCLEROSIS
     Dosage: 30 MCG ONE TIME WEEKLY IM
     Route: 030
     Dates: start: 20060126, end: 20070810

REACTIONS (4)
  - ASTHENIA [None]
  - BURNING SENSATION [None]
  - EYE PRURITUS [None]
  - PAIN IN EXTREMITY [None]
